FAERS Safety Report 9009827 (Version 1)
Quarter: 2013Q1

REPORT INFORMATION
  Report Type: Spontaneous
  Country: US (occurrence: US)
  Receive Date: 20130110
  Receipt Date: 20130110
  Transmission Date: 20140127
  Serious: Yes (Other)
  Sender: FDA-Public Use
  Company Number: US-MERCK-1002USA01381

PATIENT
  Sex: Female

DRUGS (3)
  1. SINGULAIR [Suspect]
     Route: 048
  2. FLONASE [Suspect]
     Route: 055
  3. VERAMYST [Concomitant]

REACTIONS (4)
  - Multiple allergies [Unknown]
  - Asthma [Unknown]
  - Sinusitis [Unknown]
  - Drug ineffective [Unknown]
